FAERS Safety Report 23995507 (Version 1)
Quarter: 2024Q2

REPORT INFORMATION
  Report Type: Report from Study
  Country: KR (occurrence: KR)
  Receive Date: 20240620
  Receipt Date: 20240620
  Transmission Date: 20240716
  Serious: Yes (Death, Hospitalization, Other)
  Sender: FDA-Public Use
  Company Number: KR-CELGENE-KOR-20201205675

PATIENT
  Age: 69 Year
  Sex: Male
  Weight: 62.7 kg

DRUGS (1)
  1. VIDAZA [Suspect]
     Active Substance: AZACITIDINE
     Indication: Product used for unknown indication
     Dosage: 125 MILLIGRAM
     Route: 058
     Dates: start: 20180721, end: 20180723

REACTIONS (22)
  - Septic shock [Fatal]
  - Electrolyte imbalance [Fatal]
  - Haemoptysis [Not Recovered/Not Resolved]
  - Myocardial ischaemia [Fatal]
  - Cardiomyopathy [Fatal]
  - Hypoalbuminaemia [Not Recovered/Not Resolved]
  - Electric shock sensation [Not Recovered/Not Resolved]
  - Bacterial infection [Fatal]
  - Ecchymosis [Not Recovered/Not Resolved]
  - Pleural effusion [Fatal]
  - Insomnia [Recovered/Resolved]
  - Constipation [Recovered/Resolved]
  - Constipation [Recovered/Resolved]
  - Diarrhoea [Recovered/Resolved]
  - Nausea [Recovered/Resolved]
  - Nausea [Recovered/Resolved]
  - Dyspnoea [Recovered/Resolved]
  - Pyrexia [Recovered/Resolved]
  - Hypokalaemia [Fatal]
  - Hypokalaemia [Unknown]
  - Pyrexia [Recovered/Resolved]
  - Cellulitis [Fatal]

NARRATIVE: CASE EVENT DATE: 20180724
